FAERS Safety Report 24986703 (Version 1)
Quarter: 2025Q1

REPORT INFORMATION
  Report Type: Report from Study
  Country: GB (occurrence: GB)
  Receive Date: 20250219
  Receipt Date: 20250219
  Transmission Date: 20250408
  Serious: Yes (Other)
  Sender: AMGEN
  Company Number: GB-AMGEN-GBRSL2025030626

PATIENT
  Age: 48 Year
  Sex: Female

DRUGS (2)
  1. ADALIMUMAB [Suspect]
     Active Substance: ADALIMUMAB
     Indication: Rheumatoid arthritis
     Dosage: 40 MILLIGRAM, Q2WK
     Route: 065
  2. METHOTREXATE [Concomitant]
     Active Substance: METHOTREXATE
     Route: 065
     Dates: end: 202501

REACTIONS (9)
  - Anaphylactic shock [Unknown]
  - Paraesthesia oral [Unknown]
  - Feeling hot [Unknown]
  - Pain [Unknown]
  - Head discomfort [Unknown]
  - Fatigue [Unknown]
  - Vision blurred [Unknown]
  - Malaise [Unknown]
  - Productive cough [Unknown]

NARRATIVE: CASE EVENT DATE: 20250201
